FAERS Safety Report 13523617 (Version 1)
Quarter: 2017Q2

REPORT INFORMATION
  Report Type: Spontaneous
  Country: US (occurrence: US)
  Receive Date: 20170508
  Receipt Date: 20170508
  Transmission Date: 20170830
  Serious: No
  Sender: FDA-Public Use
  Company Number: US-VIFOR (INTERNATIONAL) INC.-VIT-2017-01518

PATIENT
  Age: 70 Year
  Sex: Female

DRUGS (18)
  1. ACETYLSALICYLIC ACID [Concomitant]
     Active Substance: ASPIRIN
  2. CLONAZEPAM. [Concomitant]
     Active Substance: CLONAZEPAM
  3. COLECALCIFEROL [Concomitant]
     Active Substance: CHOLECALCIFEROL
  4. ESTRADIOL. [Concomitant]
     Active Substance: ESTRADIOL
  5. FUROSEMIDE. [Concomitant]
     Active Substance: FUROSEMIDE
  6. PARACETAMOL [Concomitant]
     Active Substance: ACETAMINOPHEN
  7. SIMVASTATIN. [Concomitant]
     Active Substance: SIMVASTATIN
  8. ASCORBIC ACID. [Concomitant]
     Active Substance: ASCORBIC ACID
  9. MAGNESIUM HYDROXIDE. [Concomitant]
     Active Substance: MAGNESIUM HYDROXIDE
  10. CALCIUM [Concomitant]
     Active Substance: CALCIUM
  11. PREGABALIN. [Concomitant]
     Active Substance: PREGABALIN
  12. PRIMIDONE. [Concomitant]
     Active Substance: PRIMIDONE
  13. TEMAZEPAM. [Concomitant]
     Active Substance: TEMAZEPAM
  14. CELECOXIB. [Concomitant]
     Active Substance: CELECOXIB
  15. FENTANYL. [Concomitant]
     Active Substance: FENTANYL
  16. TOCOPHEROL [Concomitant]
     Active Substance: TOCOPHEROL
  17. VELTASSA [Suspect]
     Active Substance: PATIROMER
     Indication: HYPERKALAEMIA
     Route: 048
     Dates: start: 201610, end: 20170208
  18. OMEPRAZOLE. [Concomitant]
     Active Substance: OMEPRAZOLE

REACTIONS (1)
  - Constipation [Not Recovered/Not Resolved]

NARRATIVE: CASE EVENT DATE: 20161031
